FAERS Safety Report 24254922 (Version 1)
Quarter: 2024Q3

REPORT INFORMATION
  Report Type: Spontaneous
  Country: CA (occurrence: CA)
  Receive Date: 20240827
  Receipt Date: 20240827
  Transmission Date: 20241017
  Serious: Yes (Hospitalization, Other)
  Sender: JOHNSON AND JOHNSON
  Company Number: CA-VIIV HEALTHCARE LIMITED-CA2023175888

PATIENT
  Age: 59 Year
  Sex: Female

DRUGS (5)
  1. RILPIVIRINE [Suspect]
     Active Substance: RILPIVIRINE
     Indication: HIV infection
     Dosage: UNK UNK, Q2M (600MG/3ML CABOTEGRAVIR, 900MG/3ML RILPIVIRINE)
     Route: 030
     Dates: start: 20231114
  2. RILPIVIRINE [Suspect]
     Active Substance: RILPIVIRINE
     Dosage: UNK UNK, Q2M (600MG/3ML CABOTEGRAVIR, 900MG/3ML RILPIVIRINE)
     Route: 030
     Dates: start: 20240620
  3. CABOTEGRAVIR [Suspect]
     Active Substance: CABOTEGRAVIR
     Indication: HIV infection
     Dosage: UNK UNK, Q2M (600MG/3ML CABOTEGRAVIR, 900MG/3ML RILPIVIRINE)
     Route: 030
     Dates: start: 20231114
  4. CABOTEGRAVIR [Suspect]
     Active Substance: CABOTEGRAVIR
     Dosage: UNK UNK, Q2M (600MG/3ML CABOTEGRAVIR, 900MG/3ML RILPIVIRINE)
     Route: 030
     Dates: start: 20240620
  5. ACETAMINOPHEN [Concomitant]
     Active Substance: ACETAMINOPHEN
     Indication: Product used for unknown indication
     Dosage: UNK (TAKEN AS NEEDED)

REACTIONS (9)
  - Pneumonia [Unknown]
  - Injection site pain [Recovered/Resolved]
  - Fatigue [Recovered/Resolved]
  - Pyrexia [Recovered/Resolved]
  - Myalgia [Recovered/Resolved]
  - Chills [Recovered/Resolved]
  - Rhinorrhoea [Recovered/Resolved]
  - Headache [Recovered/Resolved]
  - Illness [Unknown]

NARRATIVE: CASE EVENT DATE: 20231114
